FAERS Safety Report 8850986 (Version 4)
Quarter: 2013Q3

REPORT INFORMATION
  Report Type: Report from Study
  Country: NL (occurrence: NL)
  Receive Date: 20121019
  Receipt Date: 20130702
  Transmission Date: 20140515
  Serious: Yes (Other)
  Sender: FDA-Public Use
  Company Number: PHHY2012NL081361

PATIENT
  Age: 72 Year
  Sex: Male

DRUGS (24)
  1. ZOMETA [Suspect]
     Indication: METASTASES TO BONE
     Dosage: 4  MG/100 ML, 1XPER 12 WEEKS
     Route: 042
  2. ZOMETA [Suspect]
     Dosage: 4  MG/100 ML SOLUTION FOR IV INFUSION (PERIPHERAL 320 ML/H) 1X PER 28 DAYS UNK
     Route: 042
     Dates: start: 20110525
  3. ZOMETA [Suspect]
     Dosage: 4  MG/100 ML SOLUTION FOR IV INFUSION (PERIPHERAL 320 ML/H) 1X PER 28 DAYS UNK
     Route: 042
     Dates: start: 20120821
  4. ZOMETA [Suspect]
     Dosage: 4  MG/100 ML SOLUTION FOR IV INFUSION (PERIPHERAL 320 ML/H) 1X PER 28 DAYS UNK
     Route: 042
     Dates: start: 20120917
  5. ZOMETA [Suspect]
     Dosage: 4  MG/100 ML SOLUTION FOR IV INFUSION (PERIPHERAL 320 ML/H) 1X PER 28 DAYS PERIPHERAL IV 320 ML/H
     Route: 042
     Dates: start: 20121016
  6. ZOMETA [Suspect]
     Dosage: 4  MG/100 ML, 1XPER 12 WEEKS
     Route: 042
     Dates: start: 20130506
  7. ZOMETA [Suspect]
     Dosage: 4  MG/100 ML, 1XPER 12 WEEKS
     Route: 042
     Dates: start: 20130530
  8. ARANESP [Concomitant]
     Dosage: UNK UKN, UNK
  9. FENTANYL [Concomitant]
     Dosage: UNK UKN, UNK
  10. HYDROXOCOBALAMINE [Concomitant]
     Dosage: UNK UKN, UNK
  11. LACTULOSE [Concomitant]
     Dosage: UNK UKN, UNK
  12. MARCOUMAR [Concomitant]
     Dosage: UNK UKN, UNK
  13. NEBIVOLOL [Concomitant]
     Dosage: UNK UKN, UNK
  14. OXYNORM [Concomitant]
     Dosage: UNK UKN, UNK
  15. ZOLADEX [Concomitant]
     Dosage: UNK UKN, UNK
  16. CALCICHEW [Concomitant]
     Dosage: UNK UKN, UNK
  17. FUROSEMIDE [Concomitant]
     Dosage: UNK UKN, UNK
  18. MONOCEDOCARD [Concomitant]
     Dosage: UNK UKN, UNK
  19. PANTOZOL [Concomitant]
     Dosage: UNK UKN, UNK
  20. PREDNISOLONE [Concomitant]
     Dosage: UNK UKN, UNK
  21. TEMAZEPAM [Concomitant]
     Dosage: UNK UKN, UNK
  22. FLUIMUCIL [Concomitant]
     Dosage: UNK UKN, UNK
  23. MOVICOLON [Concomitant]
     Dosage: UNK UKN, UNK
  24. NORGALAX                                /UNK/ [Concomitant]
     Dosage: UNK UKN, UNK

REACTIONS (6)
  - Terminal state [Unknown]
  - General physical health deterioration [Unknown]
  - Weight decreased [Not Recovered/Not Resolved]
  - Bone pain [Not Recovered/Not Resolved]
  - Decreased appetite [Not Recovered/Not Resolved]
  - Asthenia [Unknown]
